FAERS Safety Report 9296670 (Version 2)
Quarter: 2013Q3

REPORT INFORMATION
  Report Type: Spontaneous
  Country: US (occurrence: US)
  Receive Date: 20130517
  Receipt Date: 20130717
  Transmission Date: 20140515
  Serious: Yes (Other)
  Sender: FDA-Public Use
  Company Number: US-TEVA-405481USA

PATIENT
  Age: 70 Year
  Sex: Female

DRUGS (1)
  1. COPAXONE [Suspect]
     Dates: start: 2013, end: 2013

REACTIONS (3)
  - Thrombocytopenic purpura [Unknown]
  - Henoch-Schonlein purpura [Recovered/Resolved]
  - Injection site reaction [Unknown]
